FAERS Safety Report 24368823 (Version 1)
Quarter: 2024Q3

REPORT INFORMATION
  Report Type: Spontaneous
  Country: CN (occurrence: CN)
  Receive Date: 20240927
  Receipt Date: 20240927
  Transmission Date: 20241016
  Serious: Yes (Life-Threatening, Other)
  Sender: ABBVIE
  Company Number: CN-PFIZER INC-PV202400123638

PATIENT
  Age: 14 Year
  Sex: Male
  Weight: 39 kg

DRUGS (3)
  1. AVIBACTAM SODIUM\CEFTAZIDIME [Suspect]
     Active Substance: AVIBACTAM SODIUM\CEFTAZIDIME
     Indication: Bacterial infection
     Route: 065
  2. AVIBACTAM SODIUM\CEFTAZIDIME [Suspect]
     Active Substance: AVIBACTAM SODIUM\CEFTAZIDIME
     Indication: Bacterial infection
     Dosage: 2.5 G, 4X/DAY
     Route: 041
     Dates: start: 20240906, end: 20240908
  3. ISEPAMICIN [Concomitant]
     Active Substance: ISEPAMICIN
     Indication: Bacterial infection
     Dosage: UNK
     Dates: start: 20240906

REACTIONS (7)
  - Hyperpyrexia [Recovering/Resolving]
  - Discomfort [Unknown]
  - Nausea [Recovered/Resolved]
  - Temperature intolerance [Recovering/Resolving]
  - Vomiting [Recovered/Resolved]
  - Off label use [Unknown]
  - Chills [Recovering/Resolving]

NARRATIVE: CASE EVENT DATE: 20240901
